FAERS Safety Report 12664262 (Version 2)
Quarter: 2016Q3

REPORT INFORMATION
  Report Type: Spontaneous
  Country: IT (occurrence: IT)
  Receive Date: 20160818
  Receipt Date: 20160915
  Transmission Date: 20161109
  Serious: Yes (Other)
  Sender: FDA-Public Use
  Company Number: IT-PFIZER INC-2016391811

PATIENT
  Age: 75 Year
  Sex: Male

DRUGS (8)
  1. BACTRIM [Suspect]
     Active Substance: SULFAMETHOXAZOLE\TRIMETHOPRIM
     Dosage: 12 DF, 1X/DAY
     Route: 042
     Dates: start: 20160707
  2. FLUIMUCIL [Concomitant]
     Active Substance: ACETYLCYSTEINE
     Dosage: 4 DF, UNK
     Route: 042
  3. ANTRA /00661201/ [Concomitant]
     Active Substance: OMEPRAZOLE
     Dosage: 80 MG, UNK
     Route: 042
  4. ZYVOXID [Suspect]
     Active Substance: LINEZOLID
     Dosage: 1200 MG, 1X/DAY
     Route: 042
     Dates: start: 20160628
  5. AMPICILLIN SODIUM/SULBACTAM SODIUM [Suspect]
     Active Substance: AMPICILLIN SODIUM\SULBACTAM SODIUM
     Dosage: 6 G, 1X/DAY
     Route: 042
  6. URBASON /00049601/ [Suspect]
     Active Substance: METHYLPREDNISOLONE
     Indication: BACTERIAL INFECTION
     Dosage: 40 MG, 1X/DAY
     Route: 042
     Dates: start: 20160707
  7. COLIMICINA /00013203/ [Suspect]
     Active Substance: COLISTIN SULFATE
     Indication: BACTERIAL INFECTION
     Dosage: UNK, 1X/DAY
     Route: 042
     Dates: start: 20160707
  8. CLEXANE [Concomitant]
     Active Substance: ENOXAPARIN SODIUM
     Dosage: 4000 DF, UNK
     Route: 058

REACTIONS (1)
  - Azotaemia [Recovered/Resolved]

NARRATIVE: CASE EVENT DATE: 20160715
